FAERS Safety Report 5529928-6 (Version None)
Quarter: 2007Q4

REPORT INFORMATION
  Report Type: 
  Country: None (occurrence: None)
  Receive Date: 20071129
  Receipt Date: 20071126
  Transmission Date: 20080405
  Serious: Yes (Life-Threatening, Hospitalization)
  Sender: FDA-Public Use
  Company Number: AU-BOEHRINGER INGELHEIM PHARMACEUTICALS, INC.-2007-BP-25012AU

PATIENT
  Sex: Female
  Weight: 91 kg

DRUGS (8)
  1. MICARDIS [Suspect]
     Route: 048
     Dates: start: 20040831, end: 20070316
  2. CARTIA XT [Suspect]
     Route: 048
     Dates: end: 20070316
  3. DUATROL SR [Suspect]
     Route: 048
     Dates: end: 20070316
  4. ZOCOR [Suspect]
     Route: 048
     Dates: end: 20070316
  5. ZOTON [Concomitant]
     Route: 048
  6. CALTRATE PLUS [Concomitant]
     Route: 048
  7. GLUCOSAMINE HYDROCHLORIDE [Concomitant]
     Route: 048
  8. NORSPAN [Concomitant]
     Route: 062

REACTIONS (5)
  - ANOREXIA [None]
  - LIVER FUNCTION TEST ABNORMAL [None]
  - MALAISE [None]
  - NAUSEA [None]
  - WEIGHT DECREASED [None]
